FAERS Safety Report 5912170-4 (Version None)
Quarter: 2008Q4

REPORT INFORMATION
  Report Type: 
  Country: None (occurrence: None)
  Receive Date: 20081003
  Receipt Date: 20081003
  Transmission Date: 20090506
  Serious: No
  Sender: FDA-Public Use
  Company Number: None

PATIENT
  Age: 50 Year
  Sex: Female
  Weight: 78 kg

DRUGS (2)
  1. HYDROMORPHONE HCL [Suspect]
     Indication: DIVERTICULITIS
     Dosage: 0.5MG Q2H PRN IV BOLUS
     Route: 040
     Dates: start: 20080922, end: 20080925
  2. HYDROMORPHONE HCL [Suspect]
     Indication: PAIN
     Dosage: 0.5MG Q2H PRN IV BOLUS
     Route: 040
     Dates: start: 20080922, end: 20080925

REACTIONS (3)
  - ABDOMINAL PAIN [None]
  - LIMB DISCOMFORT [None]
  - MUSCULOSKELETAL DISCOMFORT [None]
